FAERS Safety Report 18251305 (Version 1)
Quarter: 2020Q3

REPORT INFORMATION
  Report Type: Spontaneous
  Country: US (occurrence: US)
  Receive Date: 20200910
  Receipt Date: 20200910
  Transmission Date: 20201103
  Serious: No
  Sender: FDA-Public Use
  Company Number: US-CADILA HEALTHCARE LIMITED-US-ZYDUS-051838

PATIENT
  Sex: Male

DRUGS (3)
  1. MELOXICAM 15 MILLIGRAM TABLET [Suspect]
     Active Substance: MELOXICAM
     Indication: ARTHRITIS
     Dosage: UNK
     Route: 065
  2. MELOXICAM 15 MILLIGRAM TABLET [Suspect]
     Active Substance: MELOXICAM
     Dosage: UNK
  3. MELOXICAM 7.5 MILLIGRAM TABLET [Suspect]
     Active Substance: MELOXICAM
     Indication: ARTHRITIS
     Dosage: 7.5 MILLIGRAM

REACTIONS (1)
  - Drug ineffective [Unknown]
